FAERS Safety Report 5449900-4 (Version None)
Quarter: 2007Q3

REPORT INFORMATION
  Report Type: 
  Country: None (occurrence: None)
  Receive Date: 20070907
  Receipt Date: 20070828
  Transmission Date: 20080115
  Serious: Yes (Other)
  Sender: FDA-Public Use
  Company Number: 2007SP002678

PATIENT
  Age: 52 Year
  Sex: Female
  Weight: 80.7403 kg

DRUGS (6)
  1. LUNESTA [Suspect]
     Indication: INSOMNIA
     Dosage: 2 MG; ORAL;  3 MG; ORAL;  4MG; 1X; ORAL
     Route: 048
     Dates: start: 20070101, end: 20070401
  2. LUNESTA [Suspect]
     Indication: INSOMNIA
     Dosage: 2 MG; ORAL;  3 MG; ORAL;  4MG; 1X; ORAL
     Route: 048
     Dates: start: 20070730, end: 20070730
  3. LUNESTA [Suspect]
     Indication: INSOMNIA
     Dosage: 2 MG; ORAL;  3 MG; ORAL;  4MG; 1X; ORAL
     Route: 048
     Dates: start: 20070401
  4. ULTRAM [Concomitant]
  5. HYDROCODONE [Concomitant]
  6. ATORVASTATIN CALCIUM [Concomitant]

REACTIONS (4)
  - ABDOMINAL PAIN LOWER [None]
  - NAUSEA [None]
  - OVARIAN NEOPLASM [None]
  - SOMNOLENCE [None]
